FAERS Safety Report 11860756 (Version 1)
Quarter: 2015Q4

REPORT INFORMATION
  Report Type: Report from Study
  Country: US (occurrence: US)
  Receive Date: 20151222
  Receipt Date: 20151222
  Transmission Date: 20160305
  Serious: Yes (Hospitalization, Other)
  Sender: FDA-Public Use
  Company Number: US-GILEAD-2015-0188658

PATIENT
  Age: 72 Year
  Sex: Male

DRUGS (2)
  1. TENOFOVIR DISOPROXIL FUMARATE. [Suspect]
     Active Substance: TENOFOVIR DISOPROXIL FUMARATE
     Dosage: 300 UNK, UNK
     Route: 048
     Dates: start: 201510
  2. TENOFOVIR DISOPROXIL FUMARATE. [Suspect]
     Active Substance: TENOFOVIR DISOPROXIL FUMARATE
     Indication: HEPATITIS B
     Dosage: UNK UNK, UNK
     Route: 048
     Dates: start: 2011, end: 2012

REACTIONS (4)
  - Renal transplant [Unknown]
  - Ammonia increased [Unknown]
  - White blood cell count increased [Unknown]
  - Liver transplant [Unknown]

NARRATIVE: CASE EVENT DATE: 201510
